FAERS Safety Report 8384573-2 (Version None)
Quarter: 2012Q2

REPORT INFORMATION
  Report Type: 
  Country: None (occurrence: None)
  Receive Date: 20120524
  Receipt Date: 20120516
  Transmission Date: 20120825
  Serious: Yes (Hospitalization, Other)
  Sender: FDA-Public Use
  Company Number: FR-ABBOTT-12P-056-0936229-00

PATIENT
  Sex: Female

DRUGS (2)
  1. CLARITHROMYCIN [Suspect]
     Indication: PRODUCT USED FOR UNKNOWN INDICATION
     Route: 048
     Dates: end: 20111201
  2. CEFTRIAXONE [Suspect]
     Indication: PRODUCT USED FOR UNKNOWN INDICATION
     Route: 042
     Dates: end: 20111201

REACTIONS (7)
  - DERMABRASION [None]
  - FALL [None]
  - FAECES DISCOLOURED [None]
  - DIARRHOEA [None]
  - EOSINOPHILIA [None]
  - INFLAMMATION [None]
  - YERSINIA TEST POSITIVE [None]
